FAERS Safety Report 18361365 (Version 1)
Quarter: 2020Q4

REPORT INFORMATION
  Report Type: Spontaneous
  Country: FR (occurrence: FR)
  Receive Date: 20201008
  Receipt Date: 20201008
  Transmission Date: 20210114
  Serious: Yes (Life-Threatening, Hospitalization)
  Sender: FDA-Public Use
  Company Number: FR-MYLANLABS-2020M1084599

PATIENT
  Age: 28 Year
  Sex: Male
  Weight: 65 kg

DRUGS (4)
  1. PROFENID [Suspect]
     Active Substance: KETOPROFEN
     Indication: PAIN
     Dosage: UNK
     Route: 048
     Dates: end: 20170221
  2. BACLOFENE [Concomitant]
     Active Substance: BACLOFEN
     Indication: PROPHYLAXIS AGAINST ALCOHOLIC WITHDRAWAL SYNDROME
     Dosage: 10 MILLIGRAM, QD
     Route: 048
  3. PARACETAMOL [Suspect]
     Active Substance: ACETAMINOPHEN
     Indication: PAIN
     Dosage: 1 GRAM
     Route: 048
     Dates: end: 20170221
  4. LEXOMIL [Concomitant]
     Active Substance: BROMAZEPAM
     Dosage: UNK
     Route: 048

REACTIONS (2)
  - Hepatic failure [Not Recovered/Not Resolved]
  - Acute kidney injury [Not Recovered/Not Resolved]

NARRATIVE: CASE EVENT DATE: 20170221
